FAERS Safety Report 12459751 (Version 1)
Quarter: 2016Q2

REPORT INFORMATION
  Report Type: Other
  Country: US (occurrence: US)
  Receive Date: 20160613
  Receipt Date: 20160613
  Transmission Date: 20160815
  Serious: Yes (Hospitalization, Other)
  Sender: FDA-Public Use
  Company Number: US-ACTELION-A-CH2016-137250

PATIENT
  Age: 13 Year
  Sex: Male
  Weight: 52.5 kg

DRUGS (8)
  1. TRACLEER [Suspect]
     Active Substance: BOSENTAN
     Indication: PULMONARY ARTERIAL HYPERTENSION
     Dosage: 125 MG, BID
     Route: 048
  2. GLYCOPYRROLATE. [Concomitant]
     Active Substance: GLYCOPYRROLATE
  3. MILRINONE [Concomitant]
     Active Substance: MILRINONE
     Dosage: 0.5 ?G/KG, PER MIN
  4. TADALAFIL [Concomitant]
     Active Substance: TADALAFIL
     Dosage: 40 MG, OD
     Route: 048
  5. AMIODARONE [Concomitant]
     Active Substance: AMIODARONE
     Dosage: 10 ?G/KG, PER MIN
  6. VASOPRESSIN. [Concomitant]
     Active Substance: VASOPRESSIN
     Dosage: 20 , PER MIN
  7. FUROSEMIDE. [Concomitant]
     Active Substance: FUROSEMIDE
     Dosage: 40 MG, Q12HRS
     Route: 042
  8. VELETRI [Suspect]
     Active Substance: EPOPROSTENOL
     Indication: PULMONARY ARTERIAL HYPERTENSION
     Dosage: 129 NG/KG, PER MIN
     Route: 042

REACTIONS (11)
  - Haematocrit decreased [Unknown]
  - Cardiopulmonary bypass [Unknown]
  - Haemoptysis [Unknown]
  - Heart and lung transplant [Unknown]
  - Platelet count decreased [Unknown]
  - Condition aggravated [Unknown]
  - Ascites [Unknown]
  - Abdominal distension [Unknown]
  - Blood creatinine increased [Unknown]
  - Supraventricular tachycardia [Unknown]
  - Acute kidney injury [Unknown]
